FAERS Safety Report 6763518-2 (Version None)
Quarter: 2010Q2

REPORT INFORMATION
  Report Type: 
  Country: None (occurrence: None)
  Receive Date: 20100610
  Receipt Date: 20100531
  Transmission Date: 20101027
  Serious: Yes (Other)
  Sender: FDA-Public Use
  Company Number: US-SANOFI-AVENTIS-2010SA031860

PATIENT
  Age: 81 Year
  Sex: Male

DRUGS (6)
  1. PLAVIX [Suspect]
     Route: 065
  2. ASPIRIN [Suspect]
     Route: 065
  3. VENLAFAXINE [Suspect]
     Indication: ANXIETY
     Route: 065
  4. VENLAFAXINE [Suspect]
     Indication: DEPRESSION
     Route: 065
  5. TRAZODONE HCL [Suspect]
     Indication: ANXIETY
     Route: 065
  6. TRAZODONE HCL [Suspect]
     Indication: DEPRESSION
     Route: 065

REACTIONS (3)
  - DRUG INTERACTION [None]
  - GASTROINTESTINAL HAEMORRHAGE [None]
  - HAEMATOCHEZIA [None]
